FAERS Safety Report 5748272-5 (Version None)
Quarter: 2008Q2

REPORT INFORMATION
  Report Type: 
  Country: None (occurrence: None)
  Receive Date: 20080523
  Receipt Date: 20080514
  Transmission Date: 20081010
  Serious: Yes (Hospitalization)
  Sender: FDA-Public Use
  Company Number: US-PFIZER INC-2007025701

PATIENT
  Sex: Male
  Weight: 73.5 kg

DRUGS (3)
  1. SUTENT [Suspect]
     Indication: GASTROINTESTINAL STROMAL TUMOUR
     Route: 048
  2. ENALAPRIL MALEATE [Concomitant]
     Route: 048
     Dates: start: 20060720, end: 20070315
  3. PRINZIDE [Concomitant]
     Dosage: TEXT:20/25MG-FREQ:PRN AS NEEDED
     Route: 048
     Dates: start: 20060314, end: 20070315

REACTIONS (6)
  - ATELECTASIS [None]
  - DISEASE PROGRESSION [None]
  - DRUG INEFFECTIVE [None]
  - HYPOGLYCAEMIA [None]
  - METASTASES TO PERITONEUM [None]
  - PLEURAL EFFUSION [None]
